FAERS Safety Report 23934165 (Version 1)
Quarter: 2024Q2

REPORT INFORMATION
  Report Type: Spontaneous
  Country: RU (occurrence: RU)
  Receive Date: 20240603
  Receipt Date: 20240603
  Transmission Date: 20240717
  Serious: Yes (Other)
  Sender: FDA-Public Use
  Company Number: RU-RZN-LIT/RUS/24/0007920

PATIENT
  Age: 46 Year
  Sex: Female

DRUGS (4)
  1. ESOMEPRAZOLE [Suspect]
     Active Substance: ESOMEPRAZOLE
     Indication: Duodenal ulcer
     Dosage: 40MG TWICE DAILY
     Dates: start: 2019
  2. AMOXICILLIN [Suspect]
     Active Substance: AMOXICILLIN
     Indication: Duodenal ulcer
     Dosage: 1000MG TWICE DAILY
     Dates: start: 2019
  3. BISMUTH SUBCITRATE [Suspect]
     Active Substance: BISMUTH SUBCITRATE
     Indication: Duodenal ulcer
     Dosage: 240MG TWICE DAILY
     Dates: start: 2019
  4. LEVOFLOXACIN [Suspect]
     Active Substance: LEVOFLOXACIN
     Indication: Duodenal ulcer
     Dosage: 500 MG TWICE DAILY
     Dates: start: 2019

REACTIONS (1)
  - Tendonitis [Recovered/Resolved]
